FAERS Safety Report 4334649-1 (Version None)
Quarter: 2004Q2

REPORT INFORMATION
  Report Type: 
  Country: None (occurrence: None)
  Receive Date: 20040408
  Receipt Date: 20040330
  Transmission Date: 20050107
  Serious: Yes (Other)
  Sender: FDA-Public Use
  Company Number: PHEH2004US03684

PATIENT
  Sex: Male

DRUGS (2)
  1. CYCLOSPORINE [Suspect]
  2. CELLCEPT [Concomitant]

REACTIONS (2)
  - DEEP VEIN THROMBOSIS [None]
  - STOMATITIS [None]
